FAERS Safety Report 7709203-1 (Version None)
Quarter: 2011Q3

REPORT INFORMATION
  Report Type: 
  Country: None (occurrence: None)
  Receive Date: 20110825
  Receipt Date: 20110818
  Transmission Date: 20111222
  Serious: Yes (Hospitalization)
  Sender: FDA-Public Use
  Company Number: PHHY2011AU74420

PATIENT
  Age: 83 Year
  Sex: Female

DRUGS (3)
  1. ATENOLOL [Concomitant]
     Indication: HEART RATE ABNORMAL
     Dosage: LOW DOSE
  2. METOPROLOL [Concomitant]
     Indication: HEART RATE ABNORMAL
     Dosage: 10 MG, BID
  3. EXELON [Suspect]
     Route: 062

REACTIONS (3)
  - INJURY [None]
  - INFECTION [None]
  - TACHYCARDIA [None]
